FAERS Safety Report 9447109 (Version 1)
Quarter: 2013Q3

REPORT INFORMATION
  Report Type: Spontaneous
  Country: US (occurrence: US)
  Receive Date: 20130807
  Receipt Date: 20130807
  Transmission Date: 20140515
  Serious: Yes (Other)
  Sender: FDA-Public Use
  Company Number: US-AMGEN-USASP2013053222

PATIENT
  Age: 36 Year
  Sex: Male

DRUGS (1)
  1. ENBREL [Suspect]
     Indication: ANKYLOSING SPONDYLITIS
     Dosage: 50 MG, QWK
     Route: 065
     Dates: start: 20110725, end: 201306

REACTIONS (12)
  - Pneumonia [Recovered/Resolved]
  - Pharyngitis streptococcal [Unknown]
  - Tachycardia [Recovered/Resolved]
  - Heart rate irregular [Recovered/Resolved]
  - Dysphagia [Recovered/Resolved]
  - Electrolyte imbalance [Recovered/Resolved]
  - Back pain [Unknown]
  - Muscle strain [Unknown]
  - Pain [Unknown]
  - Dry eye [Unknown]
  - Influenza [Recovered/Resolved]
  - Infection [Unknown]
